FAERS Safety Report 20628048 (Version 2)
Quarter: 2022Q1

REPORT INFORMATION
  Report Type: Spontaneous
  Country: US (occurrence: US)
  Receive Date: 20220323
  Receipt Date: 20220329
  Transmission Date: 20220423
  Serious: Yes (Hospitalization)
  Sender: FDA-Public Use
  Company Number: US-PFIZER INC-202200348033

PATIENT
  Age: 83 Year
  Sex: Male
  Weight: 70.31 kg

DRUGS (4)
  1. VYNDAMAX [Suspect]
     Active Substance: TAFAMIDIS
     Indication: Cardiac amyloidosis
     Dosage: 61 MG, 1X/DAY
     Route: 048
  2. VYNDAMAX [Suspect]
     Active Substance: TAFAMIDIS
     Indication: Cardiac failure
  3. WARFARIN [Concomitant]
     Active Substance: WARFARIN
     Indication: Blood disorder
     Dosage: 4 MG, DAILY (EXCEPT IN MONDAY TAKING 6 MG)
     Route: 048
  4. CLOPIDOGREL [Concomitant]
     Active Substance: CLOPIDOGREL BISULFATE
     Indication: Thrombosis
     Dosage: 75 MG, DAILY

REACTIONS (3)
  - Fall [Unknown]
  - Rib fracture [Unknown]
  - Multiple fractures [Unknown]
